FAERS Safety Report 4903765-5 (Version None)
Quarter: 2006Q1

REPORT INFORMATION
  Report Type: 
  Country: None (occurrence: None)
  Receive Date: 20060208
  Receipt Date: 20050621
  Transmission Date: 20060701
  Serious: No
  Sender: FDA-Public Use
  Company Number: US-GLAXOSMITHKLINE-A0563609A

PATIENT
  Sex: Female

DRUGS (4)
  1. PAXIL [Suspect]
     Dosage: 25MG PER DAY
     Route: 048
     Dates: start: 20041101
  2. PAXIL CR [Suspect]
     Route: 048
  3. METHYLPHENIDATE [Concomitant]
     Route: 065
  4. WELLBUTRIN [Concomitant]

REACTIONS (2)
  - DRUG INEFFECTIVE [None]
  - DRUG WITHDRAWAL SYNDROME [None]
